FAERS Safety Report 4852123-0 (Version None)
Quarter: 2005Q4

REPORT INFORMATION
  Report Type: 
  Country: None (occurrence: None)
  Receive Date: 20051209
  Receipt Date: 20051129
  Transmission Date: 20060501
  Serious: Yes (Disabling)
  Sender: FDA-Public Use
  Company Number: 2005159958

PATIENT
  Age: 54 Year
  Sex: Female
  Weight: 73 kg

DRUGS (7)
  1. NEURONTIN [Suspect]
     Indication: PAIN IN EXTREMITY
     Dosage: 900 MG (300 MG, 3 IN 1 D), ORAL
     Route: 048
     Dates: start: 20051001
  2. DIHYDROCODEINE (DIHYDROCODEINE) [Concomitant]
  3. BACLOFEN [Concomitant]
  4. VENLAFAXINE HCL [Concomitant]
  5. TOLTERODINE TARTRATE [Concomitant]
  6. SALBUTAMOL (SALBUTAMOL) [Concomitant]
  7. CARBAMAZEPINE [Concomitant]

REACTIONS (2)
  - TOOTH FRACTURE [None]
  - TOOTH LOSS [None]
